FAERS Safety Report 13341523 (Version 1)
Quarter: 2017Q1

REPORT INFORMATION
  Report Type: Spontaneous
  Country: US (occurrence: US)
  Receive Date: 20170316
  Receipt Date: 20170316
  Transmission Date: 20170428
  Serious: No
  Sender: FDA-Public Use
  Company Number: US-ROCHE-1817182

PATIENT
  Age: 54 Year
  Sex: Male

DRUGS (4)
  1. ALDARA [Concomitant]
     Active Substance: IMIQUIMOD
     Route: 061
  2. ALDARA [Concomitant]
     Active Substance: IMIQUIMOD
     Route: 061
  3. VISMODEGIB [Suspect]
     Active Substance: VISMODEGIB
     Indication: BASAL CELL CARCINOMA
     Route: 048
  4. ALDARA [Concomitant]
     Active Substance: IMIQUIMOD
     Route: 061

REACTIONS (5)
  - Fatigue [Unknown]
  - Muscle spasms [Unknown]
  - Weight decreased [Unknown]
  - Alopecia [Unknown]
  - Dysgeusia [Unknown]
